FAERS Safety Report 8382456-5 (Version None)
Quarter: 2012Q2

REPORT INFORMATION
  Report Type: 
  Country: None (occurrence: None)
  Receive Date: 20120524
  Receipt Date: 20120518
  Transmission Date: 20120825
  Serious: Yes (Other)
  Sender: FDA-Public Use
  Company Number: PHFR2012GB003065

PATIENT
  Sex: Female

DRUGS (1)
  1. TEGRETOL [Suspect]
     Indication: NEURALGIA
     Dosage: 600 MG, BID

REACTIONS (5)
  - MUSCULOSKELETAL CHEST PAIN [None]
  - DIZZINESS [None]
  - DYSPNOEA [None]
  - DECREASED APPETITE [None]
  - WEIGHT DECREASED [None]
